FAERS Safety Report 21009468 (Version 1)
Quarter: 2022Q2

REPORT INFORMATION
  Report Type: Spontaneous
  Country: JP (occurrence: JP)
  Receive Date: 20220627
  Receipt Date: 20220627
  Transmission Date: 20220720
  Serious: No
  Sender: FDA-Public Use
  Company Number: JP-MSD-2206JPN001694J

PATIENT
  Age: 67 Year
  Sex: Female

DRUGS (2)
  1. MOLNUPIRAVIR [Suspect]
     Active Substance: MOLNUPIRAVIR
     Indication: COVID-19 treatment
     Dosage: 800 MILLIGRAM, BID
     Route: 048
     Dates: start: 20220607, end: 20220613
  2. CALONAL [Concomitant]
     Active Substance: ACETAMINOPHEN
     Indication: COVID-19 treatment
     Dosage: 400, PRN
     Route: 048
     Dates: start: 20220607, end: 20220613

REACTIONS (3)
  - Diarrhoea [Recovered/Resolved]
  - Rash [Recovered/Resolved]
  - Product use issue [Unknown]

NARRATIVE: CASE EVENT DATE: 20220609
